FAERS Safety Report 6772552-8 (Version None)
Quarter: 2010Q2

REPORT INFORMATION
  Report Type: 
  Country: None (occurrence: None)
  Receive Date: 20100616
  Receipt Date: 20090528
  Transmission Date: 20101027
  Serious: No
  Sender: FDA-Public Use
  Company Number: US-ASTRAZENECA-2009UW12243

PATIENT
  Sex: Male

DRUGS (1)
  1. PULMICORT FLEXHALER [Suspect]
     Indication: ASTHMA
     Dosage: 180 UG 2 PUFFS
     Route: 055

REACTIONS (1)
  - ASTHMA [None]
